FAERS Safety Report 8061419-3 (Version None)
Quarter: 2012Q1

REPORT INFORMATION
  Report Type: 
  Country: None (occurrence: None)
  Receive Date: 20120120
  Receipt Date: 20111101
  Transmission Date: 20120608
  Serious: No
  Sender: FDA-Public Use
  Company Number: US-ALLERGAN-1114004US

PATIENT
  Age: 74 Year
  Sex: Female
  Weight: 40.816 kg

DRUGS (2)
  1. RESTASIS [Suspect]
     Indication: DRY EYE
     Dosage: 2 GTT, UNK
     Route: 031
     Dates: end: 20110501
  2. RESTASIS [Suspect]
     Dosage: 2 GTT, BID
     Route: 031
     Dates: start: 20090101

REACTIONS (1)
  - EYE IRRITATION [None]
